FAERS Safety Report 13974833 (Version 2)
Quarter: 2018Q2

REPORT INFORMATION
  Report Type: Spontaneous
  Country: US (occurrence: US)
  Receive Date: 20170915
  Receipt Date: 20180620
  Transmission Date: 20180711
  Serious: No
  Sender: FDA-Public Use
  Company Number: US-BRAEBURN PHARMACEUTICALS, INC.-2017BBN00043

PATIENT
  Age: 21 Year
  Sex: Male

DRUGS (2)
  1. BUPROPION. [Concomitant]
     Active Substance: BUPROPION
  2. PROBUPHINE [Suspect]
     Active Substance: BUPRENORPHINE HYDROCHLORIDE
     Dosage: UNK
     Route: 059
     Dates: start: 201704

REACTIONS (8)
  - Product administered at inappropriate site [Not Recovered/Not Resolved]
  - Implant site infection [Recovered/Resolved]
  - Dependence [Not Recovered/Not Resolved]
  - Scar [Not Recovered/Not Resolved]
  - Fatigue [Unknown]
  - Incorrect drug administration duration [Not Recovered/Not Resolved]
  - Agitation [Unknown]
  - Nausea [Unknown]

NARRATIVE: CASE EVENT DATE: 201704
